FAERS Safety Report 13230962 (Version 1)
Quarter: 2017Q1

REPORT INFORMATION
  Report Type: Spontaneous
  Country: CN (occurrence: CN)
  Receive Date: 20170214
  Receipt Date: 20170214
  Transmission Date: 20170428
  Serious: Yes (Hospitalization)
  Sender: FDA-Public Use
  Company Number: CN-BAYER-2017-026100

PATIENT
  Age: 53 Year
  Sex: Male

DRUGS (2)
  1. BAYASPIRIN 100 MG [Suspect]
     Active Substance: ASPIRIN
     Indication: COAGULOPATHY
     Dosage: 1 DF, QD
     Route: 048
     Dates: start: 20161015
  2. BAYASPIRIN 100 MG [Suspect]
     Active Substance: ASPIRIN
     Indication: COAGULOPATHY
     Dosage: 1 DF, QD, DID NOT REGULARLY TAKE
     Route: 048
     Dates: start: 20140901, end: 20160922

REACTIONS (1)
  - Cerebral infarction [Recovering/Resolving]

NARRATIVE: CASE EVENT DATE: 20161013
